FAERS Safety Report 8520765-7 (Version None)
Quarter: 2012Q3

REPORT INFORMATION
  Report Type: 
  Country: None (occurrence: None)
  Receive Date: 20120719
  Receipt Date: 20120718
  Transmission Date: 20120928
  Serious: Yes (Other)
  Sender: FDA-Public Use
  Company Number: DZ-PFIZER INC-2012146223

PATIENT
  Age: 76 Year
  Sex: Female

DRUGS (7)
  1. LYRICA [Suspect]
     Dosage: 50 MG, 3X/DAY
     Route: 048
     Dates: start: 20120101, end: 20120101
  2. LYRICA [Suspect]
     Dosage: 150 MG, 2X/DAY
     Route: 048
     Dates: start: 20120101, end: 20120101
  3. INSULIN NOVO [Concomitant]
  4. LYRICA [Suspect]
     Indication: NEURALGIA
     Dosage: 50 MG, 1X/DAY
     Route: 048
     Dates: start: 20120501, end: 20120601
  5. RAMIPRIL [Concomitant]
     Dosage: 10 MG, 1X/DAY
  6. LYRICA [Suspect]
     Dosage: 50 MG, 2X/DAY
     Route: 048
     Dates: start: 20120101, end: 20120101
  7. BISOPROLOL FUMARATE [Concomitant]
     Dosage: 10 MG, 1X/DAY

REACTIONS (5)
  - DELIRIUM [None]
  - STRESS [None]
  - CRYING [None]
  - CONFUSIONAL STATE [None]
  - DIZZINESS [None]
